FAERS Safety Report 8100217-9 (Version None)
Quarter: 2012Q1

REPORT INFORMATION
  Report Type: 
  Country: None (occurrence: None)
  Receive Date: 20120125
  Receipt Date: 20120105
  Transmission Date: 20120608
  Serious: Yes (Hospitalization)
  Sender: FDA-Public Use
  Company Number: 2012SP001733

PATIENT
  Age: 61 Year
  Sex: Female

DRUGS (2)
  1. PEG-INTRON [Suspect]
     Indication: HEPATITIS C
     Dates: start: 20100301, end: 20110401
  2. RIBAVIRIN [Suspect]
     Indication: HEPATITIS C
     Dates: start: 20100301, end: 20110401

REACTIONS (3)
  - PANNICULITIS [None]
  - PARAESTHESIA [None]
  - ERYTHEMA NODOSUM [None]
